FAERS Safety Report 7623076-7 (Version None)
Quarter: 2011Q3

REPORT INFORMATION
  Report Type: 
  Country: None (occurrence: None)
  Receive Date: 20110720
  Receipt Date: 20110708
  Transmission Date: 20111222
  Serious: Yes (Hospitalization, Other)
  Sender: FDA-Public Use
  Company Number: US-AMGEN-USASP2011029757

PATIENT
  Sex: Female

DRUGS (2)
  1. PREDNISONE [Concomitant]
     Dosage: 15 MG, QD
  2. ENBREL [Suspect]
     Indication: RHEUMATOID ARTHRITIS
     Dosage: 25 MG, 3 TIMES/WK
     Dates: start: 19981201

REACTIONS (5)
  - RHEUMATOID ARTHRITIS [None]
  - SPINAL COLUMN STENOSIS [None]
  - BACK PAIN [None]
  - SPINAL FUSION SURGERY [None]
  - INTERVERTEBRAL DISC DEGENERATION [None]
